FAERS Safety Report 13656864 (Version 1)
Quarter: 2017Q2

REPORT INFORMATION
  Report Type: Report from Study
  Country: US (occurrence: US)
  Receive Date: 20170615
  Receipt Date: 20170615
  Transmission Date: 20170830
  Serious: Yes (Hospitalization)
  Sender: FDA-Public Use
  Company Number: US-ACTELION-A-NJ2017-152564

PATIENT
  Age: 21 Year
  Sex: Female
  Weight: 41.72 kg

DRUGS (3)
  1. VELETRI [Suspect]
     Active Substance: EPOPROSTENOL
     Indication: PULMONARY ARTERIAL HYPERTENSION
     Dosage: 64 NG/KG, PER MIN
     Route: 042
  2. ADCIRCA [Concomitant]
     Active Substance: TADALAFIL
  3. LETAIRIS [Concomitant]
     Active Substance: AMBRISENTAN

REACTIONS (8)
  - Fatigue [Unknown]
  - Headache [Unknown]
  - Emotional disorder [Unknown]
  - Catheter placement [Unknown]
  - Pain in jaw [Unknown]
  - Malaise [Unknown]
  - Device breakage [Unknown]
  - Nausea [Unknown]
